FAERS Safety Report 4331853-3 (Version None)
Quarter: 2004Q2

REPORT INFORMATION
  Report Type: 
  Country: None (occurrence: None)
  Receive Date: 20040405
  Receipt Date: 20031208
  Transmission Date: 20050107
  Serious: No
  Sender: FDA-Public Use
  Company Number: US-GLAXOSMITHKLINE-A0442349A

PATIENT
  Age: 45 Year
  Sex: Female

DRUGS (8)
  1. FLOVENT [Suspect]
     Indication: ASTHMA
     Dosage: 110MCG TWICE PER DAY
     Route: 055
     Dates: start: 20031121
  2. THEOPHYLLINE [Concomitant]
  3. SEREVENT [Concomitant]
  4. ALBUTEROL [Concomitant]
  5. ALTACE [Concomitant]
  6. CLONIDINE [Concomitant]
  7. SYNTHROID [Concomitant]
  8. CLARINEX [Concomitant]

REACTIONS (3)
  - EYE IRRITATION [None]
  - EYE PRURITUS [None]
  - LACRIMATION INCREASED [None]
